FAERS Safety Report 6980246-9 (Version None)
Quarter: 2010Q3

REPORT INFORMATION
  Report Type: 
  Country: None (occurrence: None)
  Receive Date: 20100914
  Receipt Date: 20100901
  Transmission Date: 20110219
  Serious: Yes (Disabling, Other)
  Sender: FDA-Public Use
  Company Number: US-BRISTOL-MYERS SQUIBB COMPANY-15283443

PATIENT
  Sex: Male

DRUGS (11)
  1. EFAVIRENZ TABS [Suspect]
     Route: 048
  2. RITONAVIR [Suspect]
     Route: 048
  3. RALTEGRAVIR [Suspect]
     Dosage: TABS RALTEGRAVIR POTASSIUM
     Route: 048
  4. ABACAVIR SULFATE AND LAMIVUDINE [Suspect]
     Route: 048
  5. ETRAVIRINE [Suspect]
     Dosage: ALSO TAKEN AS CONMED
     Route: 048
  6. ZIDOVUDINE [Suspect]
     Route: 048
  7. LAMIVUDINE [Suspect]
     Route: 048
  8. LOPINAVIR/RITONAVIR [Suspect]
     Route: 048
  9. FOSAMPRENAVIR CALCIUM [Suspect]
     Route: 048
  10. TENOFOVIR DF + EMTRICITABINE [Suspect]
     Route: 048
  11. SAQUINAVIR MESYLATE [Suspect]
     Route: 048

REACTIONS (3)
  - SPASTIC PARAPLEGIA [None]
  - SPINAL CORD DISORDER [None]
  - VITAMIN B12 DEFICIENCY [None]
